FAERS Safety Report 5823208-7 (Version None)
Quarter: 2008Q3

REPORT INFORMATION
  Report Type: 
  Country: None (occurrence: None)
  Receive Date: 20080725
  Receipt Date: 20080714
  Transmission Date: 20090109
  Serious: Yes (Death)
  Sender: FDA-Public Use
  Company Number: JP-SANOFI-SYNTHELABO-A01200805142

PATIENT
  Age: 74 Year
  Sex: Male

DRUGS (19)
  1. MEROPEN [Concomitant]
     Indication: PNEUMONIA BACTERIAL
     Dosage: UNK
     Route: 065
     Dates: start: 20080329
  2. GENTAMICIN SULFATE [Concomitant]
     Indication: PNEUMONIA BACTERIAL
     Dosage: UNK
     Route: 065
     Dates: start: 20080328
  3. MIYA BM [Concomitant]
     Indication: DRUG USE FOR UNKNOWN INDICATION
     Dosage: UNK
     Route: 065
     Dates: start: 20080228
  4. MYSLEE [Concomitant]
     Indication: DRUG USE FOR UNKNOWN INDICATION
     Dosage: UNK
     Route: 065
     Dates: start: 20080228
  5. PRERAN [Concomitant]
     Indication: DRUG USE FOR UNKNOWN INDICATION
     Dosage: UNK
     Route: 065
     Dates: start: 20080228
  6. NIKORANMART [Concomitant]
     Indication: DRUG USE FOR UNKNOWN INDICATION
     Dosage: UNK
     Route: 065
     Dates: start: 20080228
  7. LAXIS [Concomitant]
     Indication: DRUG USE FOR UNKNOWN INDICATION
     Dosage: UNK
     Route: 065
  8. PLETAL [Concomitant]
     Indication: DRUG USE FOR UNKNOWN INDICATION
     Route: 065
     Dates: start: 20080310
  9. SUCRALFATE [Concomitant]
     Indication: DRUG USE FOR UNKNOWN INDICATION
     Dosage: UNK
     Route: 065
     Dates: start: 20080303
  10. ALDACTONE [Concomitant]
     Indication: DRUG USE FOR UNKNOWN INDICATION
     Dosage: UNK
     Route: 065
     Dates: start: 20080303
  11. HEPARIN SODIUM [Concomitant]
     Indication: DRUG USE FOR UNKNOWN INDICATION
     Route: 065
     Dates: start: 20080227
  12. PLAVIX [Suspect]
     Indication: ARTERIAL OCCLUSIVE DISEASE
     Dosage: 300 MG ONCE FOLLOWED BY 75 MG DAILY
     Route: 048
     Dates: start: 20080227
  13. PLAVIX [Suspect]
     Indication: CORONARY ANGIOPLASTY
     Dosage: 300 MG ONCE FOLLOWED BY 75 MG DAILY
     Route: 048
     Dates: start: 20080227
  14. PLAVIX [Suspect]
     Indication: ACUTE MYOCARDIAL INFARCTION
     Dosage: 300 MG ONCE FOLLOWED BY 75 MG DAILY
     Route: 048
     Dates: start: 20080227
  15. BUFFERIN [Concomitant]
     Indication: ARTERIAL OCCLUSIVE DISEASE
     Dosage: 162 MG ONCE FOLLOWED BY AN UNSPECIFIED DAILY DOSE
     Route: 065
     Dates: start: 20080227
  16. BUFFERIN [Concomitant]
     Indication: CORONARY ANGIOPLASTY
     Dosage: 162 MG ONCE FOLLOWED BY AN UNSPECIFIED DAILY DOSE
     Route: 065
     Dates: start: 20080227
  17. ANCARON [Suspect]
     Indication: DRUG USE FOR UNKNOWN INDICATION
     Route: 048
     Dates: start: 20080224, end: 20080228
  18. ANCARON [Suspect]
     Dosage: UNK
     Route: 048
     Dates: start: 20080229, end: 20080307
  19. ANCARON [Suspect]
     Route: 048
     Dates: start: 20080308, end: 20080402

REACTIONS (2)
  - INTERSTITIAL LUNG DISEASE [None]
  - THROMBOSIS IN DEVICE [None]
